FAERS Safety Report 6338608-9 (Version None)
Quarter: 2009Q3

REPORT INFORMATION
  Report Type: 
  Country: None (occurrence: None)
  Receive Date: 20090903
  Receipt Date: 20070531
  Transmission Date: 20100115
  Serious: Yes (Hospitalization, Other)
  Sender: FDA-Public Use
  Company Number: US-ASTRAZENECA-2006UW08053

PATIENT
  Age: 51 Year
  Sex: Male
  Weight: 93.9 kg

DRUGS (17)
  1. SEROQUEL [Suspect]
     Indication: SCHIZOPHRENIA
     Dosage: 100 MG TO 200 MG
     Route: 048
     Dates: start: 20030401
  2. SEROQUEL [Suspect]
     Indication: DEPRESSION
     Dosage: 100 MG TO 200 MG
     Route: 048
     Dates: start: 20030401
  3. SEROQUEL [Suspect]
     Indication: AFFECTIVE DISORDER
     Dosage: 100 MG TO 200 MG
     Route: 048
     Dates: start: 20030401
  4. SEROQUEL [Suspect]
     Indication: HALLUCINATION, AUDITORY
     Dosage: 100 MG TO 200 MG
     Route: 048
     Dates: start: 20030401
  5. SEROQUEL [Suspect]
     Dosage: 100 TO 200 MG
     Route: 048
     Dates: start: 20030615, end: 20090524
  6. SEROQUEL [Suspect]
     Dosage: 100 TO 200 MG
     Route: 048
     Dates: start: 20030615, end: 20090524
  7. SEROQUEL [Suspect]
     Dosage: 100 TO 200 MG
     Route: 048
     Dates: start: 20030615, end: 20090524
  8. SEROQUEL [Suspect]
     Dosage: 100 TO 200 MG
     Route: 048
     Dates: start: 20030615, end: 20090524
  9. GEODON [Concomitant]
     Dates: start: 20050101
  10. RISPERDAL [Concomitant]
     Dates: start: 20010101
  11. WELLBUTRIN [Concomitant]
     Indication: DEPRESSION
     Dosage: 150 MG TO 300 MG
     Route: 048
     Dates: start: 20050602
  12. XANAX [Concomitant]
     Indication: ANXIETY
     Dosage: 0.5 MG TO 2 MG
     Route: 048
     Dates: start: 20031229
  13. HUMULIN 70/30 [Concomitant]
     Indication: DIABETES MELLITUS
     Dosage: 8-12 UNITS
     Dates: start: 20030114
  14. DEPAKOTE [Concomitant]
     Dosage: 500MG WITH FLUCTUATING FREQUENCY
     Route: 048
     Dates: start: 20020731
  15. GLUCOVANCE [Concomitant]
     Dosage: 2.5/500-5/500 MG
     Dates: start: 20030114
  16. OLANZAPINE [Concomitant]
     Indication: AFFECTIVE DISORDER
     Dates: start: 20020418
  17. OLANZAPINE [Concomitant]
     Indication: PSYCHOTIC DISORDER
     Dates: start: 20020418

REACTIONS (5)
  - BACK PAIN [None]
  - BLOOD TRIGLYCERIDES INCREASED [None]
  - DIABETES MELLITUS [None]
  - DIABETES MELLITUS INADEQUATE CONTROL [None]
  - DIABETIC COMPLICATION [None]
